FAERS Safety Report 15343839 (Version 1)
Quarter: 2018Q3

REPORT INFORMATION
  Report Type: Spontaneous
  Country: US (occurrence: US)
  Receive Date: 20180903
  Receipt Date: 20180903
  Transmission Date: 20181010
  Serious: Yes (Other)
  Sender: FDA-Public Use
  Company Number: US-GLAXOSMITHKLINE-US2018GSK157144

PATIENT
  Sex: Male

DRUGS (1)
  1. PREVACID [Suspect]
     Active Substance: LANSOPRAZOLE
     Indication: PRODUCT USED FOR UNKNOWN INDICATION
     Dosage: 15 UNK, UNK
     Route: 065

REACTIONS (8)
  - Diabetic nephropathy [Unknown]
  - Hyperparathyroidism secondary [Unknown]
  - Nephrogenic anaemia [Unknown]
  - Nephrotic syndrome [Unknown]
  - Chronic kidney disease [Unknown]
  - Renal failure [Unknown]
  - Hypertensive nephropathy [Unknown]
  - Chronic kidney disease-mineral and bone disorder [Unknown]
